FAERS Safety Report 25453806 (Version 1)
Quarter: 2025Q2

REPORT INFORMATION
  Report Type: Spontaneous
  Country: GB (occurrence: GB)
  Receive Date: 20250619
  Receipt Date: 20250619
  Transmission Date: 20250716
  Serious: Yes (Other)
  Sender: ABBVIE
  Company Number: GB-ABBVIE-6329386

PATIENT

DRUGS (1)
  1. RINVOQ [Suspect]
     Active Substance: UPADACITINIB
     Indication: Product used for unknown indication
     Route: 048

REACTIONS (7)
  - Blindness [Not Recovered/Not Resolved]
  - Arterial occlusive disease [Unknown]
  - Macular oedema [Unknown]
  - Embolism venous [Unknown]
  - Eye disorder [Unknown]
  - Venous occlusion [Unknown]
  - Proctitis [Unknown]
